FAERS Safety Report 4922142-4 (Version None)
Quarter: 2006Q1

REPORT INFORMATION
  Report Type: 
  Country: None (occurrence: None)
  Receive Date: 20060224
  Receipt Date: 20050816
  Transmission Date: 20060701
  Serious: Yes (Hospitalization, Disabling)
  Sender: FDA-Public Use
  Company Number: US-MERCK-0508USA03038

PATIENT
  Age: 50 Year
  Sex: Male
  Weight: 105 kg

DRUGS (7)
  1. VIOXX [Suspect]
     Indication: ROTATOR CUFF SYNDROME
     Route: 048
     Dates: start: 20010501, end: 20021101
  2. VIOXX [Suspect]
     Route: 048
     Dates: start: 20010401, end: 20010401
  3. VIOXX [Suspect]
     Route: 048
     Dates: start: 20030101, end: 20040801
  4. VIOXX [Suspect]
     Indication: ROTATOR CUFF REPAIR
     Route: 048
     Dates: start: 20010501, end: 20021101
  5. VIOXX [Suspect]
     Route: 048
     Dates: start: 20010401, end: 20010401
  6. VIOXX [Suspect]
     Route: 048
     Dates: start: 20030101, end: 20040801
  7. TYLENOL (CAPLET) [Concomitant]
     Route: 065

REACTIONS (9)
  - ANHEDONIA [None]
  - CARDIOVASCULAR DISORDER [None]
  - CORONARY ARTERY DISEASE [None]
  - EMOTIONAL DISTRESS [None]
  - HYPERCHOLESTEROLAEMIA [None]
  - HYPERTENSION [None]
  - INJURY [None]
  - MYOCARDIAL INFARCTION [None]
  - PAIN [None]
